FAERS Safety Report 20682490 (Version 4)
Quarter: 2022Q2

REPORT INFORMATION
  Report Type: Spontaneous
  Country: ES (occurrence: ES)
  Receive Date: 20220407
  Receipt Date: 20220610
  Transmission Date: 20220721
  Serious: No
  Sender: FDA-Public Use
  Company Number: ES-JNJFOC-20220345765

PATIENT
  Sex: Female

DRUGS (12)
  1. FENTANYL [Suspect]
     Active Substance: FENTANYL
     Indication: Product used for unknown indication
     Dosage: STRENGTH: 25.00 MCG/HR
     Route: 062
  2. FENTANYL [Suspect]
     Active Substance: FENTANYL
  3. FENTANYL [Suspect]
     Active Substance: FENTANYL
  4. FENTANYL [Suspect]
     Active Substance: FENTANYL
  5. FENTANYL [Suspect]
     Active Substance: FENTANYL
  6. FENTANYL [Suspect]
     Active Substance: FENTANYL
  7. FENTANYL [Suspect]
     Active Substance: FENTANYL
     Indication: Product used for unknown indication
     Dosage: STRENGTH: 25.00 MCG/HR
     Route: 062
  8. FENTANYL [Suspect]
     Active Substance: FENTANYL
  9. FENTANYL [Suspect]
     Active Substance: FENTANYL
  10. FENTANYL [Suspect]
     Active Substance: FENTANYL
  11. FENTANYL [Suspect]
     Active Substance: FENTANYL
  12. FENTANYL [Suspect]
     Active Substance: FENTANYL

REACTIONS (3)
  - Product adhesion issue [Unknown]
  - Wrong technique in product usage process [Unknown]
  - Off label use [Unknown]
